FAERS Safety Report 9275061 (Version 1)
Quarter: 2013Q2

REPORT INFORMATION
  Report Type: Spontaneous
  Country: US (occurrence: None)
  Receive Date: 20130501
  Receipt Date: 20130501
  Transmission Date: 20140414
  Serious: Yes (Other)
  Sender: FDA-Public Use
  Company Number: None

PATIENT
  Age: 60 Year
  Sex: Male
  Weight: 83.92 kg

DRUGS (2)
  1. ATENOLOL [Suspect]
     Dosage: 11PM
     Route: 048
     Dates: start: 20130301, end: 20130326
  2. ATENOLOL [Suspect]
     Dates: start: 20130327, end: 20130403

REACTIONS (1)
  - Blood pressure increased [None]
